FAERS Safety Report 19486431 (Version 3)
Quarter: 2021Q3

REPORT INFORMATION
  Report Type: Spontaneous
  Country: CZ (occurrence: CZ)
  Receive Date: 20210702
  Receipt Date: 20210802
  Transmission Date: 20211014
  Serious: Yes (Life-Threatening, Hospitalization, Other)
  Sender: FDA-Public Use
  Company Number: CZ-ACCORD-230413

PATIENT
  Age: 58 Year
  Sex: Male
  Weight: 101 kg

DRUGS (3)
  1. ETOPOSIDE. [Suspect]
     Active Substance: ETOPOSIDE
     Indication: TESTICULAR GERM CELL TUMOUR
     Dosage: REDUCED TO 75% OF THE ORIGINAL DOSE, 166.50 MG (D1?D5)
     Route: 042
     Dates: start: 20170322, end: 20170326
  2. BLEOMYCIN [Suspect]
     Active Substance: BLEOMYCIN SULFATE
     Indication: TESTICULAR GERM CELL TUMOUR
     Dosage: REDUCED TO 75% OF THE ORIGINAL DOSE, D1
     Route: 040
     Dates: start: 20170322, end: 20170326
  3. CISPLATIN. [Suspect]
     Active Substance: CISPLATIN
     Indication: TESTICULAR GERM CELL TUMOUR
     Dosage: REDUCED TO 75% OF THE ORIGINAL DOSE, 33.30 MG (D1?D5)
     Route: 042
     Dates: start: 20170322, end: 20170326

REACTIONS (4)
  - Thrombocytopenia [Recovered/Resolved]
  - C-reactive protein increased [Unknown]
  - Febrile neutropenia [Recovered/Resolved]
  - Blood creatinine increased [Recovered/Resolved]

NARRATIVE: CASE EVENT DATE: 2017
